FAERS Safety Report 15427714 (Version 1)
Quarter: 2018Q3

REPORT INFORMATION
  Report Type: Spontaneous
  Country: SE (occurrence: SE)
  Receive Date: 20180925
  Receipt Date: 20180925
  Transmission Date: 20181010
  Serious: Yes (Death, Life-Threatening, Hospitalization, Other)
  Sender: FDA-Public Use
  Company Number: SE-GLAXOSMITHKLINE-SE2018173109

PATIENT
  Age: 90 Year
  Sex: Female
  Weight: 54 kg

DRUGS (1)
  1. VOXRA [Suspect]
     Active Substance: BUPROPION HYDROCHLORIDE
     Indication: DEPRESSED MOOD
     Dosage: 150 MG, QD
     Route: 065
     Dates: start: 20171214

REACTIONS (4)
  - Dysgeusia [Fatal]
  - Starvation [Fatal]
  - Diet refusal [Fatal]
  - Parosmia [Fatal]

NARRATIVE: CASE EVENT DATE: 20171214
